FAERS Safety Report 6426667-4 (Version None)
Quarter: 2009Q4

REPORT INFORMATION
  Report Type: 
  Country: None (occurrence: None)
  Receive Date: 20091016
  Receipt Date: 20081127
  Transmission Date: 20100525
  Serious: Yes (Other)
  Sender: FDA-Public Use
  Company Number: A03200804815

PATIENT
  Age: 54 Year
  Sex: Female
  Weight: 94 kg

DRUGS (7)
  1. ELOXATIN [Suspect]
     Dosage: INTRAVENOUS NOS
     Route: 042
  2. XELODA [Suspect]
     Indication: COLON CANCER METASTATIC
     Dosage: ORAL
     Route: 048
  3. FLUOROURACIL [Suspect]
     Indication: COLON CANCER METASTATIC
     Dosage: INTRAVENOUS NOS
     Route: 042
  4. LEUCOVORIN CALCIUM [Suspect]
     Indication: COLON CANCER METASTATIC
     Dosage: INTRAVENOUS NOS
     Route: 042
  5. AVASTIN [Suspect]
     Indication: COLON CANCER METASTATIC
     Dosage: 5 MG/KG Q2W - INTRAVENOUS NOS
     Route: 042
  6. CAMPTOSAR [Suspect]
     Indication: COLON CANCER METASTATIC
     Dosage: 250 MG/M2 Q3W - INTRAVENOUS NOS
     Route: 042
  7. ACETAMINOPHEN+HYDROCODONE [Concomitant]

REACTIONS (3)
  - EPISTAXIS [None]
  - NASAL DISORDER [None]
  - NASAL SEPTUM PERFORATION [None]
